FAERS Safety Report 6740596-8 (Version None)
Quarter: 2010Q2

REPORT INFORMATION
  Report Type: 
  Country: None (occurrence: None)
  Receive Date: 20100525
  Receipt Date: 20030613
  Transmission Date: 20101027
  Serious: Yes (Hospitalization)
  Sender: FDA-Public Use
  Company Number: PHEH2003US04244

PATIENT
  Sex: Male

DRUGS (3)
  1. GLEEVEC [Suspect]
     Indication: CHRONIC MYELOID LEUKAEMIA
     Dosage: 600 MG, QD
     Route: 048
  2. GLEEVEC [Suspect]
     Dosage: 10-60 CAPSULES
  3. GLEEVEC [Suspect]
     Dosage: 600 MG, QD
     Route: 048

REACTIONS (2)
  - INTENTIONAL OVERDOSE [None]
  - MENTAL DISORDER [None]
